FAERS Safety Report 5208749-8 (Version None)
Quarter: 2007Q1

REPORT INFORMATION
  Report Type: 
  Country: None (occurrence: None)
  Receive Date: 20070111
  Receipt Date: 20070111
  Transmission Date: 20070707
  Serious: Yes (Hospitalization)
  Sender: FDA-Public Use
  Company Number: None

PATIENT
  Age: 66 Year
  Sex: Male
  Weight: 86.4 kg

DRUGS (1)
  1. HEPARIN [Suspect]
     Indication: MULTIPLE MYELOMA
     Dosage: 25000U, 25000Q24,INTRAVEN
     Route: 042
     Dates: start: 20061116, end: 20061204

REACTIONS (1)
  - THROMBOCYTOPENIA [None]
